FAERS Safety Report 5913411-X (Version None)
Quarter: 2008Q4

REPORT INFORMATION
  Report Type: 
  Country: None (occurrence: None)
  Receive Date: 20081007
  Receipt Date: 20080930
  Transmission Date: 20090506
  Serious: Yes (Other)
  Sender: FDA-Public Use
  Company Number: 2008S1016683

PATIENT
  Age: 39 Year
  Sex: Female

DRUGS (1)
  1. ALENDRONIC ACID (ALENDRONIC ACID) [Suspect]
     Indication: DRUG USE FOR UNKNOWN INDICATION

REACTIONS (5)
  - COUGH [None]
  - NASAL DISCOMFORT [None]
  - OCCUPATIONAL PROBLEM ENVIRONMENTAL [None]
  - RHINITIS ALLERGIC [None]
  - RHINORRHOEA [None]
